FAERS Safety Report 5886546-8 (Version None)
Quarter: 2008Q3

REPORT INFORMATION
  Report Type: 
  Country: None (occurrence: None)
  Receive Date: 20080917
  Receipt Date: 20080910
  Transmission Date: 20090109
  Serious: Yes (Hospitalization)
  Sender: FDA-Public Use
  Company Number: CH-TEVA-157310ISR

PATIENT
  Sex: Male
  Weight: 140 kg

DRUGS (4)
  1. AZILECT [Suspect]
     Indication: PARKINSON'S DISEASE
     Route: 048
     Dates: start: 20060601, end: 20060801
  2. PERGOLIDE MESYLATE [Concomitant]
     Indication: PARKINSON'S DISEASE
  3. SINEMET [Concomitant]
     Indication: PARKINSON'S DISEASE
  4. CORTISONE ACETATE [Concomitant]

REACTIONS (2)
  - PYREXIA [None]
  - RESPIRATORY FAILURE [None]
